FAERS Safety Report 19432288 (Version 2)
Quarter: 2021Q3

REPORT INFORMATION
  Report Type: Spontaneous
  Country: US (occurrence: US)
  Receive Date: 20210617
  Receipt Date: 20210917
  Transmission Date: 20211014
  Serious: No
  Sender: FDA-Public Use
  Company Number: US-CATALYST PHARMACEUTICALS, INC-2021CAT00091

PATIENT
  Sex: Male
  Weight: 81.63 kg

DRUGS (10)
  1. ESCITALOPRAM [Concomitant]
     Active Substance: ESCITALOPRAM OXALATE
     Dosage: 20 MG, 1X/DAY
  2. FIRDAPSE [Suspect]
     Active Substance: AMIFAMPRIDINE PHOSPHATE
     Dosage: UNK
     Route: 048
     Dates: start: 202104, end: 2021
  3. FIRDAPSE [Suspect]
     Active Substance: AMIFAMPRIDINE PHOSPHATE
     Indication: MYASTHENIC SYNDROME
     Dosage: 10 MG, 3X/DAY
     Route: 048
     Dates: start: 202102, end: 2021
  4. METOPROLOL. [Concomitant]
     Active Substance: METOPROLOL
     Dosage: 25 MG, 1X/DAY
  5. FIRDAPSE [Suspect]
     Active Substance: AMIFAMPRIDINE PHOSPHATE
     Dosage: 10 MG, 2X/DAY
     Route: 048
     Dates: start: 2021, end: 2021
  6. PYRIDOSTIGMINE [Concomitant]
     Active Substance: PYRIDOSTIGMINE
     Dosage: 60 MG
  7. PREDNISONE. [Concomitant]
     Active Substance: PREDNISONE
     Indication: MYASTHENIC SYNDROME
     Dosage: 20 MG, 1X/DAY
  8. BABY ASPIRIN [Concomitant]
     Active Substance: ASPIRIN
     Dosage: 81 MG, 1X/DAY
  9. ALBUTEROL INHALER [Concomitant]
     Active Substance: ALBUTEROL
  10. FIRDAPSE [Suspect]
     Active Substance: AMIFAMPRIDINE PHOSPHATE
     Dosage: 10 MG, 1X/DAY
     Route: 048
     Dates: start: 2021

REACTIONS (20)
  - Genital hypoaesthesia [Not Recovered/Not Resolved]
  - Pollakiuria [Not Recovered/Not Resolved]
  - Jaw disorder [Not Recovered/Not Resolved]
  - Polydipsia [Not Recovered/Not Resolved]
  - Thirst [Not Recovered/Not Resolved]
  - Penile exfoliation [Recovering/Resolving]
  - Urinary incontinence [Not Recovered/Not Resolved]
  - Pruritus genital [Not Recovered/Not Resolved]
  - Appetite disorder [Not Recovered/Not Resolved]
  - Intentional product use issue [Unknown]
  - Penile discharge [Recovering/Resolving]
  - Penile pain [Not Recovered/Not Resolved]
  - Emotional distress [Not Recovered/Not Resolved]
  - Lacrimation increased [Not Recovered/Not Resolved]
  - Nocturia [Not Recovered/Not Resolved]
  - Penile burning sensation [Recovering/Resolving]
  - Speech disorder [Not Recovered/Not Resolved]
  - Penile odour [Not Recovered/Not Resolved]
  - Rhinorrhoea [Not Recovered/Not Resolved]
  - Visual impairment [Not Recovered/Not Resolved]

NARRATIVE: CASE EVENT DATE: 2021
